FAERS Safety Report 5017646-2 (Version None)
Quarter: 2006Q2

REPORT INFORMATION
  Report Type: 
  Country: None (occurrence: None)
  Receive Date: 20060605
  Receipt Date: 20060418
  Transmission Date: 20061013
  Serious: Yes (Hospitalization)
  Sender: FDA-Public Use
  Company Number: US-ROCHE-445088

PATIENT
  Age: 61 Year
  Sex: Female

DRUGS (4)
  1. PEGASYS [Suspect]
     Dosage: ROUTE REPORTED AS INJECTABLE. THE PATIENT HAD BEEN ON AND OFF FOR THE PAST FOUR MONTHS THE THERAPY +
     Route: 050
     Dates: start: 20051118, end: 20060228
  2. PEGASYS [Suspect]
     Dosage: THE PATIENT HAD BEEN ON AND OFF THE THERAPY TO STOP HER BLOOD CELLS FROM LOWERING.
     Route: 050
     Dates: end: 20060401
  3. COPEGUS [Suspect]
     Dosage: THE PATIENT HAD BEEN ON AND OFF FOR THE PAST FOUR MONTHS THE THERAPY TO STOP HER BLOOD CELLS FROM L+
     Route: 048
     Dates: start: 20051118, end: 20060228
  4. COPEGUS [Suspect]
     Dosage: THE PATIENT HAD BEEN ON AND OFF THE THERAPY TO STOP HER BLOOD CELLS FROM LOWERING.
     Route: 048
     Dates: end: 20060401

REACTIONS (9)
  - ACCIDENT [None]
  - BLOOD MAGNESIUM DECREASED [None]
  - BLOOD POTASSIUM DECREASED [None]
  - FLUID RETENTION [None]
  - LIMB INJURY [None]
  - PITTING OEDEMA [None]
  - PLATELET COUNT DECREASED [None]
  - RED BLOOD CELL COUNT DECREASED [None]
  - WHITE BLOOD CELL COUNT DECREASED [None]
